FAERS Safety Report 15393301 (Version 1)
Quarter: 2018Q3

REPORT INFORMATION
  Report Type: Other
  Country: US (occurrence: US)
  Receive Date: 20180917
  Receipt Date: 20180917
  Transmission Date: 20181010
  Serious: No
  Sender: FDA-Public Use
  Company Number: US-LEADIANT BIOSCIENCES INC-2017STPI000727

PATIENT
  Sex: Male

DRUGS (39)
  1. VITAMIN D3 [Concomitant]
     Active Substance: CHOLECALCIFEROL
  2. VIMPAT [Concomitant]
     Active Substance: LACOSAMIDE
  3. ANORO ELLIPTA [Concomitant]
     Active Substance: UMECLIDINIUM BROMIDE\VILANTEROL TRIFENATATE
  4. CLONAZEPAM. [Concomitant]
     Active Substance: CLONAZEPAM
  5. COPAXONE [Concomitant]
     Active Substance: GLATIRAMER ACETATE
  6. OXYMORPHONE [Concomitant]
     Active Substance: OXYMORPHONE
  7. PRED FORTE [Concomitant]
     Active Substance: PREDNISOLONE ACETATE
  8. PREDNISOLONE. [Concomitant]
     Active Substance: PREDNISOLONE
  9. PROAIR HFA [Concomitant]
     Active Substance: ALBUTEROL SULFATE
  10. SPIRIVA [Concomitant]
     Active Substance: TIOTROPIUM BROMIDE MONOHYDRATE
  11. VENTOLIN [Concomitant]
     Active Substance: ALBUTEROL SULFATE
  12. POLYCARBOPHIL                      /00567702/ [Concomitant]
  13. REBIF [Concomitant]
     Active Substance: INTERFERON BETA-1A
  14. CALCIUM [Concomitant]
     Active Substance: CALCIUM
  15. PROBIOTIC                          /06395501/ [Concomitant]
     Active Substance: BIFIDOBACTERIUM ANIMALIS LACTIS
  16. PANTOPRAZOLE [Concomitant]
     Active Substance: PANTOPRAZOLE
  17. DIAZEPAM. [Concomitant]
     Active Substance: DIAZEPAM
  18. OPANA [Concomitant]
     Active Substance: OXYMORPHONE HYDROCHLORIDE
  19. TRILIPIX [Concomitant]
     Active Substance: FENOFIBRIC ACID
  20. WELLBUTRIN [Concomitant]
     Active Substance: BUPROPION HYDROCHLORIDE
  21. MATULANE [Suspect]
     Active Substance: PROCARBAZINE HYDROCHLORIDE
     Indication: BRAIN NEOPLASM MALIGNANT
     Dosage: 50 MG, QD
     Route: 048
     Dates: start: 20161122
  22. ADVAIR HFA [Concomitant]
     Active Substance: FLUTICASONE PROPIONATE\SALMETEROL XINAFOATE
  23. CITALOPRAM [Concomitant]
     Active Substance: CITALOPRAM HYDROBROMIDE
  24. GABAPENTIN. [Concomitant]
     Active Substance: GABAPENTIN
  25. VITAMIN C [Concomitant]
     Active Substance: ASCORBIC ACID
  26. CRESTOR [Concomitant]
     Active Substance: ROSUVASTATIN CALCIUM
  27. CYANOCOBALAMIN. [Suspect]
     Active Substance: CYANOCOBALAMIN
  28. EFFEXOR [Concomitant]
     Active Substance: VENLAFAXINE HYDROCHLORIDE
  29. VITAMIN D                          /00107901/ [Concomitant]
     Active Substance: ERGOCALCIFEROL
  30. LORAZEPAM. [Concomitant]
     Active Substance: LORAZEPAM
  31. HYDROCHLOROTHIAZIDE. [Concomitant]
     Active Substance: HYDROCHLOROTHIAZIDE
  32. OMEGA 3                            /01333901/ [Concomitant]
     Active Substance: FISH OIL\TOCOPHEROL
  33. AMANTADINE. [Concomitant]
     Active Substance: AMANTADINE HYDROCHLORIDE
  34. VICODIN [Concomitant]
     Active Substance: ACETAMINOPHEN\HYDROCODONE BITARTRATE
  35. VYTORIN [Concomitant]
     Active Substance: EZETIMIBE\SIMVASTATIN
  36. MULTIVITAMINS [Concomitant]
     Active Substance: VITAMINS
  37. BABY ASPIRIN [Concomitant]
     Active Substance: ASPIRIN
  38. LIPITOR [Concomitant]
     Active Substance: ATORVASTATIN CALCIUM
  39. TRAZODONE [Concomitant]
     Active Substance: TRAZODONE HYDROCHLORIDE

REACTIONS (1)
  - Blood count abnormal [Unknown]
